FAERS Safety Report 14861561 (Version 1)
Quarter: 2018Q2

REPORT INFORMATION
  Report Type: Spontaneous
  Country: US (occurrence: US)
  Receive Date: 20180508
  Receipt Date: 20180508
  Transmission Date: 20180711
  Serious: No
  Sender: FDA-Public Use
  Company Number: US-PERRIGO-17US026871

PATIENT
  Age: 51 Year
  Sex: Female
  Weight: 62.59 kg

DRUGS (6)
  1. MULTIVITAMINUM [Concomitant]
     Indication: SUPPLEMENTATION THERAPY
     Dosage: UNKNOWN, UNKNOWN
     Route: 065
  2. SYNTHROID [Concomitant]
     Active Substance: LEVOTHYROXINE SODIUM
     Indication: HYPOTHYROIDISM
     Dosage: 100 MCG, UNKNOWN
     Route: 065
  3. PERMETHRIN. [Suspect]
     Active Substance: PERMETHRIN
     Dosage: 30 G, SINGLE
     Route: 061
     Dates: start: 20170815, end: 20170815
  4. PERMETHRIN. [Suspect]
     Active Substance: PERMETHRIN
     Dosage: 30 G, SINGLE
     Route: 061
     Dates: start: 20170808, end: 20170808
  5. PERMETHRIN. [Suspect]
     Active Substance: PERMETHRIN
     Indication: ACARODERMATITIS
     Dosage: 30 G, SINGLE
     Route: 061
     Dates: start: 20170801, end: 20170801
  6. ST. JOHN^S WORT [Concomitant]
     Active Substance: ST. JOHN^S WORT
     Indication: SUPPLEMENTATION THERAPY
     Dosage: UNKNOWN, UNKNOWN
     Route: 065

REACTIONS (4)
  - Application site paraesthesia [Not Recovered/Not Resolved]
  - Prescribed overdose [Recovered/Resolved]
  - Application site pruritus [Recovering/Resolving]
  - Inappropriate schedule of drug administration [Recovered/Resolved]

NARRATIVE: CASE EVENT DATE: 20170801
